FAERS Safety Report 23147457 (Version 1)
Quarter: 2023Q4

REPORT INFORMATION
  Report Type: Other
  Country: CN (occurrence: None)
  Receive Date: 20231106
  Receipt Date: 20231106
  Transmission Date: 20240109
  Serious: Yes (Other)
  Sender: FDA-Public Use
  Company Number: CN-ROCHE-3449995

PATIENT

DRUGS (3)
  1. VEMURAFENIB [Suspect]
     Active Substance: VEMURAFENIB
     Indication: Colorectal cancer metastatic
     Dosage: TWO DOSE LEVELS
     Route: 048
  2. CETUXIMAB [Suspect]
     Active Substance: CETUXIMAB
     Indication: Colorectal cancer metastatic
     Route: 042
  3. CAMRELIZUMAB [Suspect]
     Active Substance: CAMRELIZUMAB
     Indication: Colorectal cancer metastatic
     Route: 042

REACTIONS (12)
  - Immune-mediated myocarditis [Unknown]
  - Drug eruption [Unknown]
  - Thrombocytopenia [Unknown]
  - Mucosal haemorrhage [Unknown]
  - Anaemia [Unknown]
  - Pyrexia [Unknown]
  - Diarrhoea [Unknown]
  - Reactive capillary endothelial proliferation [Unknown]
  - Mouth ulceration [Unknown]
  - Myalgia [Unknown]
  - Fatigue [Unknown]
  - Arthralgia [Unknown]
